FAERS Safety Report 19724370 (Version 1)
Quarter: 2021Q3

REPORT INFORMATION
  Report Type: Spontaneous
  Country: US (occurrence: US)
  Receive Date: 20210819
  Receipt Date: 20210819
  Transmission Date: 20211014
  Serious: Yes (Other)
  Sender: FDA-Public Use
  Company Number: US-ASTRAZENECA-2021A679285

PATIENT
  Sex: Female
  Weight: 68 kg

DRUGS (1)
  1. CALQUENCE [Suspect]
     Active Substance: ACALABRUTINIB
     Indication: CHRONIC LYMPHOCYTIC LEUKAEMIA
     Route: 048

REACTIONS (20)
  - Pain [Not Recovered/Not Resolved]
  - Tooth infection [Not Recovered/Not Resolved]
  - Neck pain [Not Recovered/Not Resolved]
  - Malignant neoplasm progression [Not Recovered/Not Resolved]
  - Adenoma benign [Not Recovered/Not Resolved]
  - Memory impairment [Unknown]
  - Abdominal distension [Unknown]
  - Dyspnoea [Not Recovered/Not Resolved]
  - Arthralgia [Not Recovered/Not Resolved]
  - Nausea [Not Recovered/Not Resolved]
  - Fungal infection [Unknown]
  - Gallbladder disorder [Not Recovered/Not Resolved]
  - White blood cell count abnormal [Not Recovered/Not Resolved]
  - Weight increased [Unknown]
  - Bone pain [Not Recovered/Not Resolved]
  - Fluid retention [Unknown]
  - Weight decreased [Recovered/Resolved]
  - Taste disorder [Not Recovered/Not Resolved]
  - Feeding disorder [Recovered/Resolved]
  - Headache [Recovering/Resolving]
